FAERS Safety Report 4286330-5 (Version None)
Quarter: 2004Q1

REPORT INFORMATION
  Report Type: 
  Country: None (occurrence: None)
  Receive Date: 20040121
  Receipt Date: 20030701
  Transmission Date: 20041129
  Serious: Yes (Death, Hospitalization)
  Sender: FDA-Public Use
  Company Number: A03200301522

PATIENT
  Age: 56 Year
  Sex: Female

DRUGS (2)
  1. PLAVIX [Suspect]
     Indication: PLATELET AGGREGATION INHIBITION
     Dosage: ORAL
     Route: 048
     Dates: end: 20010628
  2. ACETYLSALICYLIC ACID SRT [Concomitant]

REACTIONS (3)
  - HAEMATOCHEZIA [None]
  - POST PROCEDURAL HAEMORRHAGE [None]
  - THROMBOCYTOPENIA [None]
